FAERS Safety Report 7860617-9 (Version None)
Quarter: 2011Q4

REPORT INFORMATION
  Report Type: 
  Country: None (occurrence: None)
  Receive Date: 20111026
  Receipt Date: 20111011
  Transmission Date: 20120403
  Serious: Yes (Hospitalization, Other)
  Sender: FDA-Public Use
  Company Number: 2010MA002236

PATIENT
  Age: 61 Year
  Sex: Female
  Weight: 88.905 kg

DRUGS (43)
  1. METOCLOPRAMIDE [Suspect]
     Indication: DUODENOGASTRIC REFLUX
     Dosage: 10 MG; HS; PO
     Route: 048
     Dates: start: 20030524, end: 20090201
  2. LABETALOL HCL [Concomitant]
  3. NASONEX [Concomitant]
  4. SCOPOLAMINE [Concomitant]
  5. SOMA [Concomitant]
  6. TOBRADEX [Concomitant]
  7. M.V.I. [Concomitant]
  8. METHYLPREDNISOLONE [Concomitant]
  9. ALPRAZOLAM [Concomitant]
  10. CEFDINIR [Concomitant]
  11. CALCIUM +D [Concomitant]
  12. PROTONIX [Concomitant]
  13. CEFPROZIL [Concomitant]
  14. CYCLOBENZAPRINE [Concomitant]
  15. FUROSEMIDE [Concomitant]
  16. VALTREX [Concomitant]
  17. STOOL SOFTENER [Concomitant]
  18. CYCLOBENZAPRINE [Concomitant]
  19. PANTOPRAZOLE [Concomitant]
  20. PROMETHAZINE [Concomitant]
  21. CYMBALTA [Concomitant]
  22. CELEBREX [Concomitant]
  23. DIAZEPAM [Concomitant]
  24. ENDACOF HC [Concomitant]
  25. KLOR-CON [Concomitant]
  26. NEXIUM [Concomitant]
  27. DESOXIMETASONE [Concomitant]
  28. DETROL [Concomitant]
  29. ENALAPRIL MALEATE [Concomitant]
  30. TOPAMAX [Concomitant]
  31. AMBIEN [Concomitant]
  32. DITROPAN XL [Concomitant]
  33. HYDROCHLOROTHIAZIDE [Concomitant]
  34. NIFEDICAL [Concomitant]
  35. OMNICEF [Concomitant]
  36. COUMADIN [Concomitant]
  37. ALLEGRA D 24 HOUR [Concomitant]
  38. CLONAZEPAM [Concomitant]
  39. FLUCONAZOLE [Concomitant]
  40. LEVAQUIN [Concomitant]
  41. LEXAPRO [Concomitant]
  42. PREMARIN [Concomitant]
  43. MULTI-VITAMIN [Concomitant]

REACTIONS (22)
  - PAIN [None]
  - STRESS [None]
  - INSOMNIA [None]
  - HYPERSOMNIA [None]
  - PULMONARY EMBOLISM [None]
  - TARDIVE DYSKINESIA [None]
  - NECK PAIN [None]
  - EXTRAPYRAMIDAL DISORDER [None]
  - EMOTIONAL DISORDER [None]
  - CHEST DISCOMFORT [None]
  - TONGUE PARALYSIS [None]
  - HYPERTENSION [None]
  - ANXIETY [None]
  - MUSCLE TIGHTNESS [None]
  - OCCIPITAL NEURALGIA [None]
  - TIC [None]
  - ECONOMIC PROBLEM [None]
  - HYPERHIDROSIS [None]
  - INJURY [None]
  - SLEEP APNOEA SYNDROME [None]
  - BRUXISM [None]
  - CHEST PAIN [None]
